FAERS Safety Report 7591008-6 (Version None)
Quarter: 2011Q3

REPORT INFORMATION
  Report Type: 
  Country: None (occurrence: None)
  Receive Date: 20110705
  Receipt Date: 20110630
  Transmission Date: 20111222
  Serious: Yes (Hospitalization, Other)
  Sender: FDA-Public Use
  Company Number: IT-PFIZER INC-2011105545

PATIENT
  Age: 26 Year
  Sex: Female

DRUGS (4)
  1. MINIAS [Suspect]
     Indication: DEPRESSION
     Dosage: UNK, AS NEEDED
     Route: 048
     Dates: start: 20110214, end: 20110214
  2. MIRTAZAPINE [Suspect]
     Indication: DEPRESSION
     Dosage: 30 MG, 1X/DAY IN THE EVENING
     Route: 048
     Dates: start: 20110214, end: 20110214
  3. EFFEXOR XR [Suspect]
     Indication: DEPRESSION
     Dosage: 150 MG, 1X/DAY IN THE MORNING AT 8:00
     Route: 048
     Dates: start: 20110214, end: 20110214
  4. ZOLPIDEM [Suspect]
     Indication: DEPRESSION
     Dosage: 10 MG, 1X/DAY IN THE EVENING
     Route: 048
     Dates: start: 20110214, end: 20110214

REACTIONS (5)
  - DRUG ABUSE [None]
  - BLOOD AMYLASE INCREASED [None]
  - ERYTHEMA [None]
  - DRUG LEVEL INCREASED [None]
  - SOPOR [None]
